FAERS Safety Report 14929876 (Version 20)
Quarter: 2020Q1

REPORT INFORMATION
  Report Type: Spontaneous
  Country: US (occurrence: US)
  Receive Date: 20180523
  Receipt Date: 20200310
  Transmission Date: 20200409
  Serious: Yes (Hospitalization)
  Sender: FDA-Public Use
  Company Number: US-ACTELION-A-NJ2018-172391

PATIENT
  Age: 74 Year
  Sex: Female
  Weight: 64.85 kg

DRUGS (14)
  1. KLOR-CON [Concomitant]
     Active Substance: POTASSIUM CHLORIDE
     Dosage: 20 MCG, QD
     Dates: start: 201702
  2. URICOL [Concomitant]
     Dosage: 40 MG, QD
     Dates: start: 2017
  3. HYDROCHLOROTHIAZIDE. [Concomitant]
     Active Substance: HYDROCHLOROTHIAZIDE
     Dosage: 100 MG, QD
  4. FENOFIBRATE. [Concomitant]
     Active Substance: FENOFIBRATE
     Dosage: 160 MG, QD
  5. HYDROCHLORIDE B1 [Concomitant]
     Dosage: 240 MG, QD
  6. FUROSEMIDE. [Concomitant]
     Active Substance: FUROSEMIDE
     Dosage: 40 MG, QD
     Dates: start: 201702
  7. OPSUMIT [Suspect]
     Active Substance: MACITENTAN
     Indication: PULMONARY HYPERTENSION
     Dosage: 10 MG, QD
     Route: 048
     Dates: start: 201803
  8. LEVOTHYROXINE. [Concomitant]
     Active Substance: LEVOTHYROXINE
     Dosage: 100 MCG, QD
  9. UPTRAVI [Suspect]
     Active Substance: SELEXIPAG
     Indication: PULMONARY HYPERTENSION
     Dosage: 1600 MCG, BID
     Route: 048
  10. ADCIRCA [Interacting]
     Active Substance: TADALAFIL
     Indication: PRODUCT USED FOR UNKNOWN INDICATION
     Dosage: 40 MG, QD
     Route: 065
  11. ESTROGEN [Concomitant]
     Active Substance: ESTROGENS
     Dosage: 1 MG, QD
  12. DILTIAZEM. [Concomitant]
     Active Substance: DILTIAZEM
  13. UPTRAVI [Suspect]
     Active Substance: SELEXIPAG
     Dosage: 400 MCG, BID
     Route: 048
  14. UPTRAVI [Suspect]
     Active Substance: SELEXIPAG
     Dosage: 600 MCG, BID
     Route: 048

REACTIONS (44)
  - Blood pressure fluctuation [Unknown]
  - Dizziness [Unknown]
  - Migraine [Unknown]
  - Blood pressure systolic increased [Unknown]
  - Hypoacusis [Unknown]
  - Rehabilitation therapy [Recovered/Resolved]
  - Dyspnoea exertional [Not Recovered/Not Resolved]
  - Chest pain [Unknown]
  - Anaemia [Not Recovered/Not Resolved]
  - Pulmonary arterial hypertension [Unknown]
  - Memory impairment [Unknown]
  - Headache [Not Recovered/Not Resolved]
  - Cataract operation [Unknown]
  - Lung disorder [Unknown]
  - Diarrhoea [Not Recovered/Not Resolved]
  - Paranoia [Not Recovered/Not Resolved]
  - Thrombosis [Unknown]
  - Product administration error [Unknown]
  - Facial pain [Unknown]
  - Localised infection [Unknown]
  - Pulmonary embolism [Recovered/Resolved]
  - Hepatic cirrhosis [Unknown]
  - Atrial fibrillation [Unknown]
  - Cardiac disorder [Unknown]
  - Hospitalisation [Unknown]
  - Ascites [Unknown]
  - Gastrointestinal disorder [Unknown]
  - Gait disturbance [Not Recovered/Not Resolved]
  - Pneumonia [Recovered/Resolved]
  - Abdominal distension [Unknown]
  - Renal impairment [Recovered/Resolved]
  - Dyspnoea [Not Recovered/Not Resolved]
  - Myalgia [Not Recovered/Not Resolved]
  - Nausea [Unknown]
  - Drug interaction [Unknown]
  - Unevaluable event [Unknown]
  - Urinary tract infection [Not Recovered/Not Resolved]
  - Cardiac failure [Unknown]
  - Ocular discomfort [Recovered/Resolved]
  - Blood pressure increased [Unknown]
  - Fatigue [Not Recovered/Not Resolved]
  - Tension headache [Unknown]
  - Dry eye [Unknown]
  - Sjogren^s syndrome [Unknown]

NARRATIVE: CASE EVENT DATE: 20180321
